FAERS Safety Report 5045740-9 (Version None)
Quarter: 2006Q2

REPORT INFORMATION
  Report Type: 
  Country: None (occurrence: None)
  Receive Date: 20060601
  Receipt Date: 20060324
  Transmission Date: 20061013
  Serious: No
  Sender: FDA-Public Use
  Company Number: 2006-BP-00309BP

PATIENT
  Age: 69 Year
  Sex: Female

DRUGS (14)
  1. SPIRIVA [Suspect]
     Indication: CHRONIC OBSTRUCTIVE PULMONARY DISEASE
     Dosage: 18 MCG (18 MCG,1 IN 1 D),IH
  2. COREG [Concomitant]
  3. ALTACE [Concomitant]
  4. LANOXIN [Concomitant]
  5. FUROSEMIDE [Concomitant]
  6. SYNTHROID [Concomitant]
  7. TRAMADOL HCL [Concomitant]
  8. KLOR-CON [Concomitant]
  9. ZOPINOX (ZOPICLONE) [Concomitant]
  10. LEXAPRO [Concomitant]
  11. XOPENEX [Concomitant]
  12. DEMADEX [Concomitant]
  13. CALCIUM (CALCIUM) [Concomitant]
  14. MULTIVITAMIN (MULTIVITAMIN /00831701/) [Concomitant]

REACTIONS (2)
  - DYSGEUSIA [None]
  - DYSPNOEA [None]
